FAERS Safety Report 24621268 (Version 2)
Quarter: 2024Q4

REPORT INFORMATION
  Report Type: Spontaneous
  Country: IT (occurrence: IT)
  Receive Date: 20241114
  Receipt Date: 20241121
  Transmission Date: 20250115
  Serious: Yes (Life-Threatening)
  Sender: PFIZER
  Company Number: None

PATIENT
  Age: 84 Year
  Sex: Female
  Weight: 60 kg

DRUGS (17)
  1. AZITHROMYCIN [Suspect]
     Active Substance: AZITHROMYCIN
     Indication: Campylobacter bacteraemia
     Dosage: 500 MG, 1X/DAY
     Route: 048
     Dates: start: 20241104, end: 20241104
  2. DALBAVANCIN [Suspect]
     Active Substance: DALBAVANCIN
     Indication: Bacteraemia
     Dosage: 1500 MG, SINGLE
     Route: 042
     Dates: start: 20241104, end: 20241104
  3. CEFTRIAXONE [Concomitant]
     Active Substance: CEFTRIAXONE
     Dosage: 2 G, 1 VIAL AT 04.00 PM FOR OTHER 6 DAYS THEN STOP
     Route: 042
  4. LANSOPRAZOLE [Concomitant]
     Active Substance: LANSOPRAZOLE
     Dosage: 30 MG 1 TABLET AT 08 A.M.
     Route: 048
  5. LEVOTHYROXINE [Concomitant]
     Active Substance: LEVOTHYROXINE
     Dosage: 75 UG, 1 TABLET AT 07. A.M. FROM MONDAY TO FRIDAY
     Route: 048
  6. LEVOTHYROXINE [Concomitant]
     Active Substance: LEVOTHYROXINE
     Dosage: 100 UG, 1 TABLET AT 07. A.M. ON SUNDAY AND SATURDAY
     Route: 048
  7. CANRENOATE POTASSIUM [Concomitant]
     Active Substance: CANRENOATE POTASSIUM
     Dosage: 100 MG, 1/2 TABLET AT 12.00
     Route: 048
  8. FLECAINIDE [Concomitant]
     Active Substance: FLECAINIDE
     Dosage: 100 MG, 1/2 TABLET AT 08.00
     Route: 048
  9. METOPROLOL [Concomitant]
     Active Substance: METOPROLOL
     Dosage: 100 MG, 1 TABLET  AT 08.00
     Route: 048
  10. TRAZODONE [Concomitant]
     Active Substance: TRAZODONE HYDROCHLORIDE
     Dosage: 150 MG, 1 TABLET AT 09 PM
     Route: 048
  11. ALPRAZOLAM [Concomitant]
     Active Substance: ALPRAZOLAM
     Dosage: 0.25 MG, 1 TABLET AT 08 AM-08PM, 2 TABLETS AT 10.00 PM
     Route: 048
  12. TALOFEN [Concomitant]
     Active Substance: PROMAZINE HYDROCHLORIDE
     Dosage: 40 MG/ML 7 GTT AT 08 PM
     Route: 048
  13. METOCLOPRAMIDE [Concomitant]
     Active Substance: METOCLOPRAMIDE
     Dosage: 10 MG, 1 VIAL AT 12-18
     Route: 042
  14. ENOXAPARIN [Concomitant]
     Active Substance: ENOXAPARIN
     Dosage: 4.000 IU AT 06.00 PM
     Route: 058
  15. ACETAMINOPHEN [Concomitant]
     Active Substance: ACETAMINOPHEN
     Dosage: 1 G, AS NEEDED
     Route: 042
  16. TRAMADOL [Concomitant]
     Active Substance: TRAMADOL
     Dosage: 50 MG, AS NEEDED
     Route: 042
  17. MORPHINE [Concomitant]
     Active Substance: MORPHINE
     Dosage: 3 MG, AS NEEDED
     Route: 042

REACTIONS (3)
  - Acute respiratory failure [Recovered/Resolved]
  - Bronchospasm [Recovered/Resolved]
  - Erythema [Recovered/Resolved]

NARRATIVE: CASE EVENT DATE: 20241104
